FAERS Safety Report 13590031 (Version 1)
Quarter: 2017Q2

REPORT INFORMATION
  Report Type: Spontaneous
  Country: US (occurrence: US)
  Receive Date: 20170530
  Receipt Date: 20170530
  Transmission Date: 20170830
  Serious: Yes (Hospitalization)
  Sender: FDA-Public Use
  Company Number: US-JNJFOC-20170526492

PATIENT
  Age: 52 Year
  Sex: Male

DRUGS (6)
  1. STELARA [Suspect]
     Active Substance: USTEKINUMAB
     Indication: PRODUCT USED FOR UNKNOWN INDICATION
     Route: 058
  2. SENEXON [Concomitant]
     Active Substance: SENNOSIDES A AND B
     Route: 065
  3. CIALIS [Concomitant]
     Active Substance: TADALAFIL
     Route: 065
  4. OMEPRAZOLE. [Concomitant]
     Active Substance: OMEPRAZOLE
     Route: 065
  5. BUSPIRONE [Concomitant]
     Active Substance: BUSPIRONE HYDROCHLORIDE
     Route: 065
  6. LORATADINE. [Concomitant]
     Active Substance: LORATADINE
     Route: 065

REACTIONS (1)
  - Myocardial infarction [Unknown]
